FAERS Safety Report 9125399 (Version 1)
Quarter: 2013Q1

REPORT INFORMATION
  Report Type: Spontaneous
  Country: KR (occurrence: KR)
  Receive Date: 20130117
  Receipt Date: 20130117
  Transmission Date: 20140127
  Serious: Yes (Other)
  Sender: FDA-Public Use
  Company Number: KR-JNJFOC-20130104927

PATIENT
  Age: 62 Year
  Sex: Male

DRUGS (4)
  1. DOXORUBICIN [Suspect]
     Indication: METASTASES TO LUNG
     Dosage: ON DAY-1, TOTAL OF 8 CYCLES
     Route: 042
  2. DOXORUBICIN [Suspect]
     Indication: MIXED HEPATOCELLULAR CHOLANGIOCARCINOMA
     Dosage: ON DAY-1, TOTAL OF 8 CYCLES
     Route: 042
  3. CISPLATIN [Suspect]
     Indication: METASTASES TO LUNG
     Dosage: ON DAY-1, TOTAL OF 8 CYCLES
     Route: 065
  4. CISPLATIN [Suspect]
     Indication: MIXED HEPATOCELLULAR CHOLANGIOCARCINOMA
     Dosage: ON DAY-1, TOTAL OF 8 CYCLES
     Route: 065

REACTIONS (3)
  - Neuropathy peripheral [Unknown]
  - Neutropenia [Unknown]
  - Off label use [Unknown]
